FAERS Safety Report 5999470-7 (Version None)
Quarter: 2008Q4

REPORT INFORMATION
  Report Type: 
  Country: None (occurrence: None)
  Receive Date: 20081215
  Receipt Date: 20081209
  Transmission Date: 20090506
  Serious: Yes (Death)
  Sender: FDA-Public Use
  Company Number: US-CELGENEUS-163-21880-08110815

PATIENT
  Sex: Male

DRUGS (4)
  1. REVLIMID [Suspect]
     Indication: MULTIPLE MYELOMA
     Route: 048
     Dates: start: 20080522, end: 20080101
  2. REVLIMID [Suspect]
     Route: 048
     Dates: start: 20060720, end: 20061101
  3. REVLIMID [Suspect]
     Dosage: 10-15MG
     Route: 048
     Dates: start: 20061201, end: 20070801
  4. REVLIMID [Suspect]
     Route: 048
     Dates: start: 20070831, end: 20071001

REACTIONS (1)
  - MULTIPLE MYELOMA [None]
